FAERS Safety Report 4731104-1 (Version None)
Quarter: 2005Q3

REPORT INFORMATION
  Report Type: 
  Country: None (occurrence: None)
  Receive Date: 20050728
  Receipt Date: 20050614
  Transmission Date: 20060218
  Serious: No
  Sender: FDA-Public Use
  Company Number: ZICO001227

PATIENT
  Age: 65 Year
  Sex: Male

DRUGS (2)
  1. PRIALT [Suspect]
     Indication: BACK PAIN
     Dosage: 0.3 MCG/DAY INTRATHECAL
     Route: 037
     Dates: start: 20050607
  2. OXYCODONE HCL [Concomitant]

REACTIONS (5)
  - DISTURBANCE IN ATTENTION [None]
  - INSOMNIA [None]
  - MENTAL IMPAIRMENT [None]
  - NERVOUSNESS [None]
  - PAIN [None]
